FAERS Safety Report 5346576-1 (Version None)
Quarter: 2007Q2

REPORT INFORMATION
  Report Type: 
  Country: None (occurrence: None)
  Receive Date: 20070430
  Receipt Date: 20070308
  Transmission Date: 20071010
  Serious: No
  Sender: FDA-Public Use
  Company Number: 261490

PATIENT
  Age: 78 Year
  Sex: Female
  Weight: 62.6 kg

DRUGS (6)
  1. LEVEMIR [Suspect]
     Indication: DIABETES MELLITUS NON-INSULIN-DEPENDENT
     Dosage: 23 LU, QD, SUBCUTANEOUS
     Route: 058
     Dates: start: 20070201
  2. PLAVIX [Concomitant]
  3. GLIPIZIDE [Concomitant]
  4. TOPROL-XL [Concomitant]
  5. CRESTOR [Concomitant]
  6. HYZAAR [Concomitant]

REACTIONS (1)
  - INJECTION SITE BRUISING [None]
